FAERS Safety Report 11563891 (Version 1)
Quarter: 2015Q3

REPORT INFORMATION
  Report Type: Spontaneous
  Country: US (occurrence: None)
  Receive Date: 20150928
  Receipt Date: 20150928
  Transmission Date: 20151125
  Serious: No
  Sender: FDA-Public Use
  Company Number: US-MDT-ADR-2015-01857

PATIENT
  Age: 26 Year
  Sex: Female

DRUGS (1)
  1. LIORESAL [Suspect]
     Active Substance: BACLOFEN
     Dosage: 325MCG/DAY

REACTIONS (3)
  - Somnolence [None]
  - Disturbance in social behaviour [None]
  - Malaise [None]
